FAERS Safety Report 14899980 (Version 1)
Quarter: 2018Q2

REPORT INFORMATION
  Report Type: Spontaneous
  Country: FR (occurrence: FR)
  Receive Date: 20180516
  Receipt Date: 20180516
  Transmission Date: 20180711
  Serious: Yes (Other)
  Sender: FDA-Public Use
  Company Number: FR-MERCK KGAA-2047864

PATIENT
  Age: 52 Year
  Sex: Female

DRUGS (1)
  1. NOVOTHYROX [Suspect]
     Active Substance: LEVOTHYROXINE SODIUM
     Indication: PRODUCT USED FOR UNKNOWN INDICATION

REACTIONS (17)
  - Mental impairment [None]
  - Stress [None]
  - Muscle spasms [Recovering/Resolving]
  - Fatigue [Recovering/Resolving]
  - Irritability [None]
  - Anxiety [None]
  - Personal relationship issue [None]
  - Hyperhidrosis [Recovering/Resolving]
  - Vertigo [None]
  - Memory impairment [None]
  - Loss of libido [None]
  - Myalgia [Recovering/Resolving]
  - Headache [None]
  - Depression [None]
  - Diarrhoea [None]
  - Apathy [None]
  - Dizziness [None]

NARRATIVE: CASE EVENT DATE: 201706
